FAERS Safety Report 6582313-0 (Version None)
Quarter: 2010Q1

REPORT INFORMATION
  Report Type: 
  Country: None (occurrence: None)
  Receive Date: 20100212
  Receipt Date: 20100212
  Transmission Date: 20100710
  Serious: Yes (Hospitalization)
  Sender: FDA-Public Use
  Company Number: None

PATIENT
  Age: 64 Year
  Sex: Male
  Weight: 132 kg

DRUGS (1)
  1. INSULIN GLARGINE [Suspect]
     Indication: DIABETES MELLITUS
     Dosage: 10 UNITS AT BEDTIME SQ
     Route: 058
     Dates: start: 20100203, end: 20100203

REACTIONS (2)
  - ANGIOEDEMA [None]
  - RASH [None]
